FAERS Safety Report 19921820 (Version 1)
Quarter: 2021Q4

REPORT INFORMATION
  Report Type: Spontaneous
  Country: US (occurrence: US)
  Receive Date: 20211006
  Receipt Date: 20211006
  Transmission Date: 20220303
  Serious: Yes (Hospitalization, Other)
  Sender: FDA-Public Use
  Company Number: US-AMGEN-USASP2021150936

PATIENT
  Age: 54 Year
  Sex: Male

DRUGS (3)
  1. TALIMOGENE LAHERPAREPVEC [Suspect]
     Active Substance: TALIMOGENE LAHERPAREPVEC
     Indication: Malignant melanoma
     Dosage: UNK
     Route: 065
  2. BEVACIZUMAB [Suspect]
     Active Substance: BEVACIZUMAB
     Indication: Capillary leak syndrome
     Dosage: UNK
     Route: 065
  3. BEVACIZUMAB [Suspect]
     Active Substance: BEVACIZUMAB
     Indication: Off label use

REACTIONS (7)
  - Acute kidney injury [Recovering/Resolving]
  - Portal vein thrombosis [Recovering/Resolving]
  - Seroma [Recovering/Resolving]
  - Vitiligo [Recovering/Resolving]
  - Deep vein thrombosis [Recovering/Resolving]
  - Colitis [Recovering/Resolving]
  - Off label use [Unknown]
